FAERS Safety Report 6784647-3 (Version None)
Quarter: 2010Q2

REPORT INFORMATION
  Report Type: 
  Country: None (occurrence: None)
  Receive Date: 20100622
  Receipt Date: 20100617
  Transmission Date: 20101027
  Serious: Yes (Hospitalization)
  Sender: FDA-Public Use
  Company Number: B0657759A

PATIENT
  Sex: Female

DRUGS (25)
  1. AUGMENTIN '125' [Suspect]
     Indication: PROPHYLAXIS
     Dosage: 3G PER DAY
     Route: 042
     Dates: start: 20100112, end: 20100112
  2. ATRACURIUM [Suspect]
     Dosage: 40MG PER DAY
     Route: 042
     Dates: start: 20100112, end: 20100112
  3. PROPOFOL [Suspect]
     Route: 042
     Dates: start: 20100112, end: 20100112
  4. SUFENTA PRESERVATIVE FREE [Suspect]
     Route: 042
     Dates: start: 20100112, end: 20100112
  5. NORMACOL [Suspect]
     Indication: PREMEDICATION
     Route: 054
     Dates: start: 20100111, end: 20100111
  6. DEXAMETHASONE ACETATE [Suspect]
     Indication: DRUG USE FOR UNKNOWN INDICATION
     Dosage: 8MG PER DAY
     Route: 042
     Dates: start: 20100112, end: 20100112
  7. ACUPAN [Suspect]
     Route: 042
     Dates: start: 20100112, end: 20100112
  8. BETADINE [Suspect]
     Indication: PREOPERATIVE CARE
     Route: 061
     Dates: start: 20100111, end: 20100112
  9. NAROPIN [Suspect]
     Route: 026
     Dates: start: 20100112, end: 20100112
  10. DROPERIDOL [Suspect]
     Dosage: 1.25MG SINGLE DOSE
     Route: 042
     Dates: start: 20100112, end: 20100112
  11. LOVENOX [Suspect]
     Indication: PREMEDICATION
     Dosage: 4000IU PER DAY
     Route: 058
     Dates: start: 20100111, end: 20100112
  12. MIDAZOLAM HCL [Suspect]
     Route: 042
     Dates: start: 20100112, end: 20100112
  13. SUPRANE [Suspect]
     Route: 055
     Dates: start: 20100112, end: 20100112
  14. ATROPINE [Suspect]
     Dosage: .5MG PER DAY
     Route: 042
     Dates: start: 20100112, end: 20100112
  15. BETADINE [Suspect]
     Route: 067
     Dates: start: 20100112, end: 20100112
  16. NEOSTIGMINE [Suspect]
     Dosage: 2.5MG SINGLE DOSE
     Route: 042
     Dates: start: 20100112, end: 20100112
  17. DOLIPRANE [Concomitant]
     Route: 065
  18. PROFENID [Concomitant]
     Route: 065
     Dates: end: 20100101
  19. EXACYL [Concomitant]
     Route: 065
  20. MOPRAL [Concomitant]
     Route: 065
  21. NEURONTIN [Concomitant]
     Indication: PREMEDICATION
     Route: 065
     Dates: start: 20100111, end: 20100119
  22. PERFALGAN [Concomitant]
     Route: 065
     Dates: start: 20100112
  23. RINGER'S [Concomitant]
     Route: 065
     Dates: start: 20100112
  24. PHYSIOLOGICAL SERUM [Concomitant]
     Route: 065
     Dates: start: 20100112
  25. GLUCOSE + POTASSIUM CHLORIDE + SODIUM CHLORIDE [Concomitant]
     Route: 065
     Dates: start: 20100112

REACTIONS (5)
  - HAEMATURIA [None]
  - OLIGURIA [None]
  - POST PROCEDURAL HAEMATOMA [None]
  - PRODUCT QUALITY ISSUE [None]
  - RENAL FAILURE ACUTE [None]
